FAERS Safety Report 8057435-8 (Version None)
Quarter: 2012Q1

REPORT INFORMATION
  Report Type: 
  Country: None (occurrence: None)
  Receive Date: 20120119
  Receipt Date: 20120116
  Transmission Date: 20120608
  Serious: Yes (Life-Threatening, Hospitalization)
  Sender: FDA-Public Use
  Company Number: SE-ASTRAZENECA-2011SE74280

PATIENT
  Age: 45 Year
  Sex: Female

DRUGS (3)
  1. VALTREX [Concomitant]
  2. MEROPENEM [Suspect]
     Route: 042
     Dates: start: 20111104, end: 20111104
  3. CITALOPRAM [Concomitant]

REACTIONS (1)
  - ANAPHYLACTIC SHOCK [None]
